FAERS Safety Report 6984056-8 (Version None)
Quarter: 2010Q3

REPORT INFORMATION
  Report Type: 
  Country: None (occurrence: None)
  Receive Date: 20100915
  Receipt Date: 20090518
  Transmission Date: 20110219
  Serious: No
  Sender: FDA-Public Use
  Company Number: US-WYE-H09387409

PATIENT
  Age: 66 Year
  Sex: Male

DRUGS (1)
  1. PRISTIQ [Suspect]
     Route: 048
     Dates: start: 20090409, end: 20090420

REACTIONS (3)
  - AMNESIA [None]
  - FEELING ABNORMAL [None]
  - HALLUCINATION [None]
